FAERS Safety Report 23766870 (Version 2)
Quarter: 2024Q2

REPORT INFORMATION
  Report Type: Spontaneous
  Country: SE (occurrence: SE)
  Receive Date: 20240422
  Receipt Date: 20240502
  Transmission Date: 20240716
  Serious: Yes (Other)
  Sender: FDA-Public Use
  Company Number: None

PATIENT
  Age: 60 Year
  Sex: Male
  Weight: 70 kg

DRUGS (4)
  1. PRIVIGEN [Suspect]
     Active Substance: HUMAN IMMUNOGLOBULIN G
     Indication: Chronic inflammatory demyelinating polyradiculoneuropathy
     Dosage: 2 G/KG PER OCCASION
     Route: 042
     Dates: start: 202309, end: 20231108
  2. OMEPRAZOLE [Concomitant]
     Active Substance: OMEPRAZOLE
     Dosage: 1 VB
     Route: 048
  3. ORUDIS [Concomitant]
     Active Substance: KETOPROFEN
     Dosage: 1 DF (1 TN/1 TABLET IN THE EVENING)
     Route: 048
     Dates: start: 20221026
  4. ACETAMINOPHEN [Concomitant]
     Active Substance: ACETAMINOPHEN
     Dosage: 1 VB
     Route: 048
     Dates: start: 20220512

REACTIONS (3)
  - Thrombophlebitis [Recovering/Resolving]
  - Deep vein thrombosis [Recovering/Resolving]
  - Lymphangitis [Recovering/Resolving]

NARRATIVE: CASE EVENT DATE: 20230906
